FAERS Safety Report 18777754 (Version 2)
Quarter: 2021Q1

REPORT INFORMATION
  Report Type: Spontaneous
  Country: US (occurrence: US)
  Receive Date: 20210122
  Receipt Date: 20210203
  Transmission Date: 20210419
  Serious: No
  Sender: FDA-Public Use
  Company Number: US-PFIZER INC-2020445393

PATIENT
  Age: 65 Year
  Sex: Female

DRUGS (1)
  1. IBRANCE [Suspect]
     Active Substance: PALBOCICLIB
     Indication: COGNITIVE DISORDER
     Dosage: 125 MG, CYCLIC [1TAB DAILY X 14 DAYS; OFF 1 WEEK EVERY 21 DAY CYCLE]
     Route: 048

REACTIONS (2)
  - Nausea [Unknown]
  - Off label use [Unknown]
